FAERS Safety Report 15281708 (Version 1)
Quarter: 2018Q3

REPORT INFORMATION
  Report Type: Spontaneous
  Country: US (occurrence: US)
  Receive Date: 20180731
  Receipt Date: 20180731
  Transmission Date: 20181010
  Serious: Yes (Other)
  Sender: FDA-Public Use
  Company Number: None

PATIENT
  Sex: Female
  Weight: 40.5 kg

DRUGS (2)
  1. FLUTICASONE PROPIONATE. [Suspect]
     Active Substance: FLUTICASONE PROPIONATE
     Indication: MULTIPLE ALLERGIES
     Dosage: ?          OTHER STRENGTH:MCG;QUANTITY:1 SPRAY(S);?
     Route: 055
     Dates: start: 20180525, end: 20180722
  2. VITAMINS ? ONE PER DAY CHILDREN^S VITAMINS [Concomitant]

REACTIONS (4)
  - Suicidal ideation [None]
  - Anxiety [None]
  - Rash [None]
  - Snoring [None]
